FAERS Safety Report 9343624 (Version 1)
Quarter: 2013Q2

REPORT INFORMATION
  Report Type: Spontaneous
  Country: GB (occurrence: None)
  Receive Date: 20130610
  Receipt Date: 20130610
  Transmission Date: 20140414
  Serious: Yes (Life-Threatening)
  Sender: FDA-Public Use
  Company Number: AUR-APL-2013-04516

PATIENT
  Age: 80 Year
  Sex: Female

DRUGS (6)
  1. RAMIPRIL [Suspect]
     Indication: HYPERTENSION
     Route: 048
     Dates: start: 20130509, end: 20130510
  2. ACULAR (KETOROLAC TROMETHAMINE) [Concomitant]
  3. AMLODIPINE (AMLODIPINE) [Concomitant]
  4. ASPIRIN (ACETYLSALICYLIC ACID) [Concomitant]
  5. OMEPRAZOLE SODIUM(OMEPRAZOLE SODIUM) [Concomitant]
  6. PRED FORTE (PREDNISOLONE ACETATE) [Concomitant]

REACTIONS (1)
  - Swollen tongue [None]
